FAERS Safety Report 10557727 (Version 4)
Quarter: 2015Q3

REPORT INFORMATION
  Report Type: Report from Study
  Country: US (occurrence: US)
  Receive Date: 20141031
  Receipt Date: 20150908
  Transmission Date: 20151125
  Serious: Yes (Hospitalization, Other)
  Sender: FDA-Public Use
  Company Number: US-SA-2014SA148451

PATIENT
  Age: 60 Year
  Sex: Female

DRUGS (1)
  1. CEREZYME [Suspect]
     Active Substance: IMIGLUCERASE
     Indication: GAUCHER^S DISEASE
     Dosage: FREQUENCY Q2?DOSE: 5600 MG/INF
     Route: 041
     Dates: start: 19940315

REACTIONS (6)
  - Pneumonia [Unknown]
  - Chest pain [Recovered/Resolved]
  - Asthenia [Unknown]
  - Pulmonary thrombosis [Not Recovered/Not Resolved]
  - Infection [Unknown]
  - Respiratory disorder [Not Recovered/Not Resolved]

NARRATIVE: CASE EVENT DATE: 20141018
